FAERS Safety Report 6782346-5 (Version None)
Quarter: 2010Q2

REPORT INFORMATION
  Report Type: 
  Country: None (occurrence: None)
  Receive Date: 20100621
  Receipt Date: 20100611
  Transmission Date: 20101027
  Serious: Yes (Other)
  Sender: FDA-Public Use
  Company Number: US-JNJFOC-20100502012

PATIENT
  Age: 6 Year
  Sex: Female
  Weight: 27.67 kg

DRUGS (4)
  1. CHILDREN'S MOTRIN [Suspect]
     Route: 048
  2. CHILDREN'S MOTRIN [Suspect]
     Indication: PYREXIA
     Dosage: 200MG 1-2 TIMES DAILY
     Route: 048
  3. CHILDREN'S TYLENOL SUSPENSION [Suspect]
     Indication: EAR PAIN
     Dosage: 320MG 1-2 TIMES DAILY
     Route: 048
  4. CHILDREN'S TYLENOL SUSPENSION [Suspect]
     Indication: PYREXIA
     Dosage: 320MG 1-2 TIMES DAILY
     Route: 048

REACTIONS (3)
  - DRUG INEFFECTIVE [None]
  - PRODUCT QUALITY ISSUE [None]
  - SURGERY [None]
